FAERS Safety Report 14640587 (Version 1)
Quarter: 2018Q1

REPORT INFORMATION
  Report Type: Spontaneous
  Country: US (occurrence: US)
  Receive Date: 20180315
  Receipt Date: 20180315
  Transmission Date: 20180509
  Serious: Yes (Other)
  Sender: FDA-Public Use
  Company Number: US-MYLANLABS-2018M1014574

PATIENT
  Sex: Male
  Weight: 98 kg

DRUGS (1)
  1. MORPHINE [Suspect]
     Active Substance: MORPHINE
     Indication: PAIN
     Dosage: UNK
     Route: 048

REACTIONS (3)
  - Constipation [Recovering/Resolving]
  - Drug effect incomplete [Unknown]
  - Renal failure [Unknown]
